FAERS Safety Report 5924334-4 (Version None)
Quarter: 2008Q4

REPORT INFORMATION
  Report Type: 
  Country: None (occurrence: None)
  Receive Date: 20081020
  Receipt Date: 20081007
  Transmission Date: 20090506
  Serious: Yes (Other)
  Sender: FDA-Public Use
  Company Number: AU-WATSON-2008-06185

PATIENT
  Age: 72 Year
  Sex: Male

DRUGS (1)
  1. MIRTAZAPINE (WATSON LABORATORIES) [Suspect]
     Indication: DRUG USE FOR UNKNOWN INDICATION
     Dosage: 7.5 MG, DAILY
     Route: 048
     Dates: start: 20060101

REACTIONS (1)
  - HYPONATRAEMIA [None]
